FAERS Safety Report 7438422-7 (Version None)
Quarter: 2011Q2

REPORT INFORMATION
  Report Type: 
  Country: None (occurrence: None)
  Receive Date: 20110426
  Receipt Date: 20110415
  Transmission Date: 20111010
  Serious: Yes (Hospitalization, Other)
  Sender: FDA-Public Use
  Company Number: BR-SANOFI-AVENTIS-2011SA010616

PATIENT
  Age: 13 Year
  Sex: Male
  Weight: 38 kg

DRUGS (3)
  1. AUTOPEN 24 [Suspect]
  2. HUMALOG [Suspect]
     Indication: TYPE 1 DIABETES MELLITUS
     Dosage: ACCORDING TO CARBOHYDRATE COUNTING
     Route: 058
     Dates: start: 20070101
  3. LANTUS [Suspect]
     Indication: TYPE 1 DIABETES MELLITUS
     Route: 058
     Dates: start: 20070101

REACTIONS (4)
  - ACIDOSIS [None]
  - SLUGGISHNESS [None]
  - HYPERGLYCAEMIA [None]
  - DIZZINESS [None]
